FAERS Safety Report 10640544 (Version 1)
Quarter: 2014Q4

REPORT INFORMATION
  Report Type: Spontaneous
  Country: ES (occurrence: None)
  Receive Date: 20141205
  Receipt Date: 20141205
  Transmission Date: 20150529
  Serious: Yes (Hospitalization, Other)
  Sender: FDA-Public Use
  Company Number: ES-ZYDUS-005756

PATIENT
  Age: 37 Year
  Sex: Female

DRUGS (6)
  1. MYCOPHENOLATE MOFETIL (MYCOPHENOLATE MOFETIL) [Suspect]
     Active Substance: MYCOPHENOLATE MOFETIL
     Indication: IMMUNOSUPPRESSION
  2. PREDNISONE (PREDNISONE) [Suspect]
     Active Substance: PREDNISONE
     Indication: IMMUNOSUPPRESSION
  3. RITUXIMAB (RITUXIMAB) [Suspect]
     Active Substance: RITUXIMAB
     Indication: IMMUNOSUPPRESSION
  4. AZATHIOPRINE (AZATHIOPRINE) [Suspect]
     Active Substance: AZATHIOPRINE
     Indication: IMMUNOSUPPRESSION
  5. CYCLOPHOSPHAMIDE (CYCLOPHOSPHAMIDE) [Suspect]
     Active Substance: CYCLOPHOSPHAMIDE
     Indication: IMMUNOSUPPRESSION
  6. CHLOROQUINE [Suspect]
     Active Substance: CHLOROQUINE\CHLOROQUINE PHOSPHATE
     Indication: IMMUNOSUPPRESSION

REACTIONS (12)
  - Gastrointestinal haemorrhage [None]
  - Multi-organ failure [None]
  - Nervous system disorder [None]
  - Strongyloidiasis [None]
  - Systemic candida [None]
  - Enterococcal bacteraemia [None]
  - Metabolic encephalopathy [None]
  - Vomiting [None]
  - Ileus [None]
  - Confusional state [None]
  - Disorientation [None]
  - Bradyphrenia [None]
